FAERS Safety Report 10567294 (Version 2)
Quarter: 2016Q2

REPORT INFORMATION
  Report Type: Report from Study
  Country: US (occurrence: US)
  Receive Date: 20141106
  Receipt Date: 20160421
  Transmission Date: 20160815
  Serious: Yes (Other)
  Sender: FDA-Public Use
  Company Number: US-ROCHE-1446364

PATIENT
  Sex: Female

DRUGS (5)
  1. AREDS SUPPLEMENT NOS [Concomitant]
  2. AVASTIN [Suspect]
     Active Substance: BEVACIZUMAB
     Indication: NEOVASCULAR AGE-RELATED MACULAR DEGENERATION
     Route: 050
     Dates: start: 20101025
  3. LUCENTIS [Suspect]
     Active Substance: RANIBIZUMAB
     Indication: NEOVASCULAR AGE-RELATED MACULAR DEGENERATION
     Route: 050
     Dates: start: 20111102
  4. MYDRIACYL [Concomitant]
     Active Substance: TROPICAMIDE
     Indication: MYDRIASIS
     Dosage: OU
     Route: 065
  5. REFRESH TEARS [Concomitant]
     Active Substance: CARBOXYMETHYLCELLULOSE SODIUM
     Dosage: BOTH EYES
     Route: 047

REACTIONS (8)
  - Punctate keratitis [Unknown]
  - Visual acuity reduced [Unknown]
  - Cataract [Unknown]
  - Detachment of retinal pigment epithelium [Unknown]
  - Macular pigmentation [Unknown]
  - Subretinal fluid [Unknown]
  - Macular degeneration [Unknown]
  - Product use issue [Unknown]
